FAERS Safety Report 8030051-X (Version None)
Quarter: 2012Q1

REPORT INFORMATION
  Report Type: 
  Country: None (occurrence: None)
  Receive Date: 20120109
  Receipt Date: 20120105
  Transmission Date: 20120608
  Serious: Yes (Other)
  Sender: FDA-Public Use
  Company Number: US-BAYER-2012-001849

PATIENT
  Age: 40 Year
  Sex: Female

DRUGS (1)
  1. BETASERON [Suspect]
     Indication: MULTIPLE SCLEROSIS
     Dosage: 1 ML, QOD
     Route: 058
     Dates: start: 20110101

REACTIONS (9)
  - ABDOMINAL PAIN UPPER [None]
  - DIZZINESS [None]
  - EATING DISORDER [None]
  - NAUSEA [None]
  - INSOMNIA [None]
  - MYALGIA [None]
  - MUSCLE SPASMS [None]
  - VOMITING [None]
  - ABDOMINAL DISCOMFORT [None]
